FAERS Safety Report 13041478 (Version 3)
Quarter: 2021Q4

REPORT INFORMATION
  Report Type: Other
  Country: US (occurrence: US)
  Receive Date: 20161219
  Receipt Date: 20211011
  Transmission Date: 20220303
  Serious: No
  Sender: FDA-Public Use
  Company Number: US-ROCHE-1224323

PATIENT
  Age: 13 Year
  Sex: Female

DRUGS (4)
  1. VEMURAFENIB [Suspect]
     Active Substance: VEMURAFENIB
     Indication: Ganglioglioma
     Route: 048
     Dates: start: 201111
  2. VEMURAFENIB [Suspect]
     Active Substance: VEMURAFENIB
     Route: 048
  3. VINBLASTINE [Concomitant]
     Active Substance: VINBLASTINE
     Indication: Ganglioglioma
     Route: 065
     Dates: start: 201111
  4. CHLOROQUINE [Concomitant]
     Active Substance: CHLOROQUINE

REACTIONS (7)
  - Arthralgia [Recovered/Resolved]
  - Keratosis pilaris [Not Recovered/Not Resolved]
  - Telangiectasia [Unknown]
  - Skin mass [Unknown]
  - Drug resistance [Recovered/Resolved]
  - Intentional product use issue [Unknown]
  - Off label use [Unknown]
